FAERS Safety Report 17817804 (Version 1)
Quarter: 2020Q2

REPORT INFORMATION
  Report Type: Spontaneous
  Country: CN (occurrence: CN)
  Receive Date: 20200522
  Receipt Date: 20200522
  Transmission Date: 20200714
  Serious: Yes (Death, Other)
  Sender: FDA-Public Use
  Company Number: CN-PFM-2020-13458

PATIENT

DRUGS (6)
  1. ETOPOSIDE. [Suspect]
     Active Substance: ETOPOSIDE
     Indication: LYMPHOMA
     Dosage: 180 MG, UNK
     Route: 041
     Dates: start: 20180608, end: 20180608
  2. CYCLOPHOSPHAMIDE. [Suspect]
     Active Substance: CYCLOPHOSPHAMIDE
     Indication: LYMPHOMA
     Dosage: 1300 MG, UNK
     Route: 041
     Dates: start: 20180608, end: 20180608
  3. BICARBONATE [Concomitant]
     Active Substance: SODIUM BICARBONATE
     Indication: ALKALOSIS
     Dosage: 100 ML, UNK
     Route: 042
     Dates: start: 20180608, end: 20180608
  4. PREDNISONE. [Suspect]
     Active Substance: PREDNISONE
     Indication: LYMPHOMA
     Dosage: 100 MG, UNK
     Route: 048
     Dates: start: 20180608, end: 20180608
  5. VINORELBINE TARTRATE. [Suspect]
     Active Substance: VINORELBINE TARTRATE
     Indication: LYMPHOMA
     Dosage: 20 MG, UNK
     Route: 041
     Dates: start: 20180608, end: 20180608
  6. EPIRUBICIN [Suspect]
     Active Substance: EPIRUBICIN
     Indication: LYMPHOMA
     Dosage: 130 MG, UNK
     Route: 041
     Dates: start: 20180608, end: 20180608

REACTIONS (3)
  - Off label use [Unknown]
  - Tumour lysis syndrome [Fatal]
  - Product use in unapproved indication [Unknown]

NARRATIVE: CASE EVENT DATE: 20180609
